FAERS Safety Report 6339339-1 (Version None)
Quarter: 2009Q3

REPORT INFORMATION
  Report Type: 
  Country: None (occurrence: None)
  Receive Date: 20090903
  Receipt Date: 20090826
  Transmission Date: 20100115
  Serious: Yes (Hospitalization)
  Sender: FDA-Public Use
  Company Number: B0590203A

PATIENT
  Sex: Male

DRUGS (12)
  1. ZELITREX [Suspect]
     Dosage: 500MG PER DAY
     Route: 048
     Dates: start: 20090422, end: 20090501
  2. VIDAZA [Suspect]
     Indication: DRUG USE FOR UNKNOWN INDICATION
     Dosage: 150MG PER DAY
     Route: 065
     Dates: start: 20090420
  3. BACTRIM [Concomitant]
     Dosage: 1TAB PER DAY
     Route: 048
     Dates: start: 20090417, end: 20090518
  4. COVERSYL [Concomitant]
     Route: 065
  5. SECTRAL [Concomitant]
     Route: 065
  6. ELISOR [Concomitant]
     Route: 065
  7. CORVASAL [Concomitant]
     Route: 065
  8. MOPRAL [Concomitant]
     Route: 065
  9. PLAVIX [Concomitant]
     Route: 065
  10. ASPEGIC 1000 [Concomitant]
     Route: 065
  11. STILNOX [Concomitant]
     Route: 065
  12. IKOREL [Concomitant]
     Route: 065

REACTIONS (2)
  - OEDEMA PERIPHERAL [None]
  - RENAL FAILURE ACUTE [None]
